FAERS Safety Report 5648152-X (Version None)
Quarter: 2008Q1

REPORT INFORMATION
  Report Type: 
  Country: None (occurrence: None)
  Receive Date: 20080229
  Receipt Date: 20080219
  Transmission Date: 20080703
  Serious: Yes (Life-Threatening)
  Sender: FDA-Public Use
  Company Number: MC200800099

PATIENT
  Sex: Male

DRUGS (3)
  1. ANGIOMAX [Suspect]
     Indication: PERCUTANEOUS CORONARY INTERVENTION
     Dosage: 0.75 MG/KG, BOLUS, INTRAVENOUS; 1.75 MG/KG, HR, INTRAEVNOUS
     Route: 042
     Dates: start: 20080214, end: 20080214
  2. ANGIOMAX [Suspect]
     Indication: PERCUTANEOUS CORONARY INTERVENTION
     Dosage: 0.75 MG/KG, BOLUS, INTRAVENOUS; 1.75 MG/KG, HR, INTRAEVNOUS
     Route: 042
     Dates: start: 20080214
  3. ASPIRIN [Concomitant]

REACTIONS (4)
  - COAGULATION TIME PROLONGED [None]
  - CORONARY ARTERY DISSECTION [None]
  - CORONARY ARTERY THROMBOSIS [None]
  - PROCEDURAL COMPLICATION [None]
